FAERS Safety Report 14355194 (Version 2)
Quarter: 2018Q1

REPORT INFORMATION
  Report Type: Spontaneous
  Country: DE (occurrence: DE)
  Receive Date: 20180105
  Receipt Date: 20180212
  Transmission Date: 20180509
  Serious: Yes (Hospitalization)
  Sender: FDA-Public Use
  Company Number: DE-PFIZER INC-2018001254

PATIENT
  Age: 60 Year
  Sex: Male
  Weight: 83 kg

DRUGS (8)
  1. VITAMIN D3 [Concomitant]
     Active Substance: CHOLECALCIFEROL
     Indication: METASTASES TO BONE
     Dosage: UNK
     Dates: start: 20170608, end: 20170816
  2. NOVAMINSULFON [Concomitant]
     Active Substance: METAMIZOLE
     Indication: PAIN IN EXTREMITY
     Dosage: UNK
     Dates: start: 201703, end: 20170822
  3. SUNITINIB MALATE. [Suspect]
     Active Substance: SUNITINIB MALATE
     Indication: RENAL CELL CARCINOMA
     Dosage: 1 DF, QD
     Route: 048
     Dates: start: 20170627, end: 20170724
  4. MOVICOL [Concomitant]
     Active Substance: POLYETHYLENE GLYCOL 3350\POTASSIUM CHLORIDE\SODIUM BICARBONATE\SODIUM CHLORIDE
     Indication: CONSTIPATION
     Dosage: UNK
     Dates: start: 201706, end: 20171212
  5. XGEVA [Concomitant]
     Active Substance: DENOSUMAB
     Dosage: UNK
     Dates: start: 20170612
  6. PANTOZOL [Concomitant]
     Active Substance: PANTOPRAZOLE SODIUM
     Indication: CHOLELITHIASIS
     Dosage: UNK
     Dates: start: 201703
  7. CALCIUM [Suspect]
     Active Substance: CALCIUM
     Indication: METASTASES TO BONE
     Dosage: 1 DF, QD
     Route: 048
     Dates: start: 20170608, end: 20170816
  8. CLEXANE [Concomitant]
     Active Substance: ENOXAPARIN SODIUM
     Indication: PROPHYLAXIS
     Dosage: UNK
     Dates: start: 20170803

REACTIONS (2)
  - Hypercalcaemia [Recovered/Resolved]
  - Disease recurrence [Recovered/Resolved]

NARRATIVE: CASE EVENT DATE: 20170816
